FAERS Safety Report 7302095-4 (Version None)
Quarter: 2011Q1

REPORT INFORMATION
  Report Type: 
  Country: None (occurrence: None)
  Receive Date: 20110207
  Receipt Date: 20110120
  Transmission Date: 20110831
  Serious: Yes (Hospitalization)
  Sender: FDA-Public Use
  Company Number: DSA_44784_2011

PATIENT
  Age: 44 Year
  Sex: Female

DRUGS (12)
  1. RYTHMOL [Suspect]
     Indication: PRODUCT USED FOR UNKNOWN INDICATION
     Dosage: (450 MG QD ORAL)
     Route: 048
  2. PROZAC [Suspect]
     Indication: PRODUCT USED FOR UNKNOWN INDICATION
     Dosage: (40 MG QD ORAL)
     Route: 048
  3. NEXIUM /01479303/ [Concomitant]
  4. FLOLAN [Suspect]
     Indication: COR PULMONALE CHRONIC
     Dosage: (DF INTRACENOUS (NOT OTHERWISE SPECIFIED) )
     Route: 042
     Dates: start: 20080912
  5. KLOR-CON [Concomitant]
  6. PREDNISONE [Concomitant]
  7. LASIX [Concomitant]
  8. FLOLAN [Suspect]
     Indication: COR PULMONALE CHRONIC
     Dosage: (35.4NG/KG/ML INTRAVENOUS (NOT OTHERWISE SPECIFIED)), (30.56 NG/KG/MIN INTRAVENEOUS (NOT OTHERWISE S
     Route: 042
     Dates: start: 20080912
  9. FLOLAN [Suspect]
     Indication: PULMONARY ARTERIAL HYPERTENSION
     Dosage: (35.4NG/KG/ML INTRAVENOUS (NOT OTHERWISE SPECIFIED)), (30.56 NG/KG/MIN INTRAVENEOUS (NOT OTHERWISE S
     Route: 042
     Dates: start: 20080912
  10. CLONAZEPAM [Concomitant]
  11. WELLBUTRIN [Suspect]
     Indication: PRODUCT USED FOR UNKNOWN INDICATION
     Dosage: (200 MG QD ORAL)
     Route: 048
  12. LISINOPRIL [Concomitant]

REACTIONS (5)
  - SUPRAVENTRICULAR TACHYCARDIA [None]
  - HEART RATE INCREASED [None]
  - DRUG DOSE OMISSION [None]
  - DIZZINESS [None]
  - CONFUSIONAL STATE [None]
